FAERS Safety Report 10861392 (Version 1)
Quarter: 2015Q1

REPORT INFORMATION
  Report Type: Spontaneous
  Country: None (occurrence: None)
  Receive Date: 20150219
  Receipt Date: 20150219
  Transmission Date: 20150721
  Serious: No
  Sender: FDA-Public Use
  Company Number: None

PATIENT
  Sex: Female

DRUGS (1)
  1. STIVARGA [Suspect]
     Active Substance: REGORAFENIB
     Indication: CHEMOTHERAPY
     Dosage: DAILY X 21 DAYS OFF 7 DAYS
     Route: 048
     Dates: start: 20150119

REACTIONS (2)
  - Malaise [None]
  - Renal disorder [None]
